FAERS Safety Report 7274723-3 (Version None)
Quarter: 2011Q1

REPORT INFORMATION
  Report Type: 
  Country: None (occurrence: None)
  Receive Date: 20110204
  Receipt Date: 20110126
  Transmission Date: 20110831
  Serious: Yes (Other)
  Sender: FDA-Public Use
  Company Number: US-RB-019955-11

PATIENT
  Sex: Male

DRUGS (1)
  1. MUCINEX DM [Suspect]
     Indication: EUPHORIC MOOD
     Dosage: PATIENT MAY BE TAKING 15 TO 30 TABLETS
     Route: 048

REACTIONS (1)
  - DRUG ABUSE [None]
